FAERS Safety Report 8401997 (Version 2)
Quarter: 2013Q2

REPORT INFORMATION
  Report Type: Spontaneous
  Country: US (occurrence: None)
  Receive Date: 20111227
  Receipt Date: 20120426
  Transmission Date: 20140414
  Serious: No
  Sender: FDA-Public Use
  Company Number: PHEH2011US009391

PATIENT
  Age: 39 Year
  Sex: Female
  Weight: 113.4 kg

DRUGS (6)
  1. GILENYA [Suspect]
     Indication: MULTIPLE SCLEROSIS
     Dosage: 0.5 MG, QD, ORAL
     Route: 048
     Dates: start: 20111110
  2. DULCOLAX (BISACODYL) [Concomitant]
  3. LORAZEPAM (LORAZEPAM) [Concomitant]
  4. NORTRIPTYLINE HYDROCHLORIDE (NORTRIPTYLINE HYDROCHLORIDE) [Concomitant]
  5. OXYBUTYNIN CHLORIDE (OXYBUTYNIN HYDROCHLORIDE) [Concomitant]
  6. ATIVAN (LORAZEPAM) [Concomitant]

REACTIONS (2)
  - SOMNOLENCE [None]
  - Abdominal pain upper [None]
